FAERS Safety Report 9962026 (Version 1)
Quarter: 2014Q1

REPORT INFORMATION
  Report Type: Spontaneous
  Country: US (occurrence: None)
  Receive Date: 20140127
  Receipt Date: 20140127
  Transmission Date: 20141002
  Serious: Yes (Hospitalization)
  Sender: FDA-Public Use
  Company Number: 1199539

PATIENT
  Age: 37 Year
  Sex: Female

DRUGS (2)
  1. ACTIVASE [Suspect]
     Indication: CEREBROVASCULAR ACCIDENT
     Dosage: (100 MG), INTRAVENOUS (NOT OTHERWISE SPECIFIED)
     Route: 042
  2. HEPARIN (HEPARIN SODIUM) [Concomitant]

REACTIONS (1)
  - Cerebrovascular accident [None]
